FAERS Safety Report 20499273 (Version 2)
Quarter: 2022Q1

REPORT INFORMATION
  Report Type: Spontaneous
  Country: US (occurrence: US)
  Receive Date: 20220222
  Receipt Date: 20220304
  Transmission Date: 20220423
  Serious: No
  Sender: FDA-Public Use
  Company Number: US-009507513-1910USA009931

PATIENT
  Age: 54 Year
  Sex: Female

DRUGS (2)
  1. ASMANEX [Suspect]
     Active Substance: MOMETASONE FUROATE
     Dosage: 1 PUFF TWICE DAILY
     Dates: start: 20191010
  2. ASMANEX [Suspect]
     Active Substance: MOMETASONE FUROATE
     Dosage: 3 DOSES A DAY
     Dates: start: 20220209

REACTIONS (5)
  - Poor quality product administered [Unknown]
  - Product quality issue [Unknown]
  - Poor quality product administered [Unknown]
  - Product quality issue [Unknown]
  - No adverse event [Unknown]

NARRATIVE: CASE EVENT DATE: 20191010
